FAERS Safety Report 5500672-4 (Version None)
Quarter: 2007Q4

REPORT INFORMATION
  Report Type: 
  Country: None (occurrence: None)
  Receive Date: 20071025
  Receipt Date: 20071009
  Transmission Date: 20080405
  Serious: Yes (Other)
  Sender: FDA-Public Use
  Company Number: 8027404

PATIENT
  Age: 21 Year
  Sex: Female
  Weight: 88.64 kg

DRUGS (3)
  1. KEPPRA [Suspect]
     Indication: EPILEPSY
     Dosage: 500 MG 1/D PO
     Route: 048
     Dates: start: 20070716
  2. ORTHO TRI-CYCLEN [Concomitant]
  3. MULTI-VITAMIN [Concomitant]

REACTIONS (3)
  - ABORTION INDUCED [None]
  - DRUG EXPOSURE DURING PREGNANCY [None]
  - PREGNANCY [None]
